FAERS Safety Report 6077643-5 (Version None)
Quarter: 2009Q1

REPORT INFORMATION
  Report Type: 
  Country: None (occurrence: None)
  Receive Date: 20090213
  Receipt Date: 20090206
  Transmission Date: 20090719
  Serious: Yes (Hospitalization, Other)
  Sender: FDA-Public Use
  Company Number: US-ELI_LILLY_AND_COMPANY-US200902001720

PATIENT
  Sex: Female
  Weight: 126.98 kg

DRUGS (6)
  1. BYETTA [Suspect]
     Indication: TYPE 2 DIABETES MELLITUS
     Dosage: UNK, UNKNOWN
     Dates: start: 20050101, end: 20050101
  2. GLUCOPHAGE [Concomitant]
     Indication: TYPE 2 DIABETES MELLITUS
     Dosage: UNK, UNKNOWN
  3. AVANDIA [Concomitant]
     Indication: TYPE 2 DIABETES MELLITUS
     Dosage: UNK, UNKNOWN
  4. MICRONASE [Concomitant]
     Indication: TYPE 2 DIABETES MELLITUS
     Dosage: UNK, UNKNOWN
  5. LANTUS [Concomitant]
     Indication: TYPE 2 DIABETES MELLITUS
     Dosage: UNK, UNKNOWN
  6. BLOOD AND RELATED PRODUCTS [Concomitant]
     Dosage: 2 U, UNKNOWN
     Dates: start: 20070201, end: 20070201

REACTIONS (26)
  - ABDOMINAL WALL DISORDER [None]
  - ABSCESS RUPTURE [None]
  - ASTHENIA [None]
  - BLOOD GLUCOSE INCREASED [None]
  - BURNING SENSATION [None]
  - DELAYED RECOVERY FROM ANAESTHESIA [None]
  - DRUG INEFFECTIVE [None]
  - ENDOTRACHEAL INTUBATION COMPLICATION [None]
  - ERYTHEMA [None]
  - FATIGUE [None]
  - GLYCOSYLATED HAEMOGLOBIN [None]
  - HYPOTENSION [None]
  - IMPAIRED HEALING [None]
  - INCISION SITE ABSCESS [None]
  - LOSS OF CONSCIOUSNESS [None]
  - MALAISE [None]
  - MOBILITY DECREASED [None]
  - NAUSEA [None]
  - NEUROPATHY PERIPHERAL [None]
  - PAIN [None]
  - PROCEDURAL PAIN [None]
  - PYREXIA [None]
  - TOOTH FRACTURE [None]
  - UTERINE CANCER [None]
  - VAGINAL HAEMORRHAGE [None]
  - WOUND DRAINAGE [None]
